FAERS Safety Report 8998535 (Version 2)
Quarter: 2013Q1

REPORT INFORMATION
  Report Type: Report from Study
  Country: GB (occurrence: GB)
  Receive Date: 20130103
  Receipt Date: 20130204
  Transmission Date: 20140127
  Serious: Yes (Life-Threatening, Hospitalization)
  Sender: FDA-Public Use
  Company Number: GB-ROCHE-1176513

PATIENT
  Age: 76 Year
  Sex: Male
  Weight: 81.3 kg

DRUGS (8)
  1. RANIBIZUMAB [Suspect]
     Indication: MACULAR OEDEMA
     Dosage: LAST DOSE PRIOR TO SAE:04/OCT/2012
     Route: 050
     Dates: start: 20110414, end: 20110414
  2. RANIBIZUMAB [Suspect]
     Route: 050
     Dates: start: 20110512
  3. RANIBIZUMAB [Suspect]
     Route: 050
     Dates: start: 20110707
  4. RANIBIZUMAB [Suspect]
     Route: 050
     Dates: start: 20110804
  5. RANIBIZUMAB [Suspect]
     Route: 050
     Dates: start: 20110929
  6. RANIBIZUMAB [Suspect]
     Route: 050
     Dates: start: 20120405
  7. RANIBIZUMAB [Suspect]
     Route: 050
     Dates: start: 20120705
  8. RANIBIZUMAB [Suspect]
     Route: 050
     Dates: start: 20121004

REACTIONS (2)
  - Adenocarcinoma pancreas [Unknown]
  - Metastases to lung [Unknown]
